FAERS Safety Report 10683960 (Version 2)
Quarter: 2015Q1

REPORT INFORMATION
  Report Type: Report from Study
  Country: US (occurrence: US)
  Receive Date: 20141230
  Receipt Date: 20150105
  Transmission Date: 20150720
  Serious: Yes (Death, Other)
  Sender: FDA-Public Use
  Company Number: US-GILEAD-2014-0129475

PATIENT
  Age: 35 Year
  Sex: Male

DRUGS (3)
  1. IBRUTINIB [Concomitant]
     Active Substance: IBRUTINIB
  2. IDELALISIB [Suspect]
     Active Substance: IDELALISIB
     Indication: CHRONIC LYMPHOCYTIC LEUKAEMIA
     Dosage: 150 MG, UNK
     Route: 048
     Dates: start: 20141204, end: 20141224
  3. RITUXAN [Concomitant]
     Active Substance: RITUXIMAB

REACTIONS (2)
  - Chronic lymphocytic leukaemia transformation [Fatal]
  - Prolymphocytic leukaemia [Fatal]

NARRATIVE: CASE EVENT DATE: 201412
